FAERS Safety Report 8062868-X (Version None)
Quarter: 2012Q1

REPORT INFORMATION
  Report Type: 
  Country: None (occurrence: None)
  Receive Date: 20120111
  Receipt Date: 20120104
  Transmission Date: 20120608
  Serious: Yes (Other)
  Sender: FDA-Public Use
  Company Number: 2011030610

PATIENT
  Age: 15 Year
  Sex: Female
  Weight: 63.9572 kg

DRUGS (21)
  1. FLUDROCORTISONE ACETATE [Concomitant]
  2. GABAPENTIN [Concomitant]
  3. NEXIUM [Concomitant]
  4. MULTIVITAMIN (DAILY MULTIVITAMIN) [Concomitant]
  5. ZOFRAN [Concomitant]
  6. CLARITIN [Concomitant]
  7. HIZENTRA [Suspect]
     Indication: IMMUNODEFICIENCY COMMON VARIABLE
     Dosage: (5 MG 1X/WEEK, (25 ML) 1-2 SITES OVER 1-2 HOURS SUBCUTANEOUS)
     Route: 058
     Dates: start: 20111129
  8. CYMBALTA [Concomitant]
  9. ALBUTEROL [Concomitant]
  10. HIZENTRA [Suspect]
     Indication: IMMUNODEFICIENCY COMMON VARIABLE
     Dosage: SUBCUTANEOUS
     Route: 058
     Dates: start: 20111220
  11. DIFLUCAN [Concomitant]
  12. TYLENOL/CODEINE (GALENIC /PARACETAMOL/CODEINE/) [Concomitant]
  13. VALTREX [Concomitant]
  14. VITAMIN D [Concomitant]
  15. HIZENTRA [Suspect]
     Indication: IMMUNODEFICIENCY COMMON VARIABLE
     Dosage: SUBCUTANEOUS
     Route: 058
     Dates: start: 20110717
  16. HIZENTRA [Suspect]
     Indication: IMMUNODEFICIENCY COMMON VARIABLE
     Dosage: (5 MG 1X/WEEK, (25 ML) 1-2 SITES OVER 1-2 HOURS SUBCUTANEOUS)
     Route: 058
     Dates: start: 20111129
  17. HIZENTRA [Suspect]
     Indication: IMMUNODEFICIENCY COMMON VARIABLE
     Dosage: (5 G 1X/WEEK, (25 ML) 1-2 SITES OVER1-2 HOURS SUBCUTANEOUS)
     Route: 058
     Dates: start: 20111220
  18. AMITRIPTYLINE HCL [Concomitant]
  19. CONCERTA [Concomitant]
  20. LYRICA [Concomitant]
  21. NAPROXEN [Concomitant]

REACTIONS (3)
  - EYE SWELLING [None]
  - LOCALISED INFECTION [None]
  - URINARY TRACT INFECTION [None]
